FAERS Safety Report 8214848-9 (Version None)
Quarter: 2012Q1

REPORT INFORMATION
  Report Type: 
  Country: None (occurrence: None)
  Receive Date: 20120316
  Receipt Date: 20120305
  Transmission Date: 20120608
  Serious: Yes (Hospitalization, Other)
  Sender: FDA-Public Use
  Company Number: US-ELI_LILLY_AND_COMPANY-US201108004574

PATIENT
  Sex: Female

DRUGS (14)
  1. FORTEO [Suspect]
     Indication: OSTEOPOROSIS
     Dosage: 20 UG, QD
  2. SPIRIVA [Concomitant]
  3. MULTI-VITAMIN [Concomitant]
  4. PRAVASTAN [Concomitant]
  5. LEVOTHYROXINE SODIUM [Concomitant]
  6. CALCIUM [Concomitant]
  7. SPIRONOLACTONE [Concomitant]
  8. PRED FORT [Concomitant]
     Indication: CORNEAL TRANSPLANT
  9. BENADRYL [Concomitant]
  10. TYLENOL (CAPLET) [Concomitant]
  11. MIRALAX [Concomitant]
  12. ASCORBIC ACID [Concomitant]
  13. FORTEO [Suspect]
     Dosage: 20 UG, QD
  14. FORTEO [Suspect]
     Dosage: 20 UG, QD
     Route: 065

REACTIONS (16)
  - MUSCLE HAEMORRHAGE [None]
  - ADVERSE DRUG REACTION [None]
  - MYALGIA [None]
  - MOBILITY DECREASED [None]
  - HAEMORRHAGE [None]
  - BALANCE DISORDER [None]
  - SCOLIOSIS [None]
  - FEELING ABNORMAL [None]
  - HEARING IMPAIRED [None]
  - BACK PAIN [None]
  - PNEUMONIA [None]
  - FALL [None]
  - DYSPNOEA [None]
  - FATIGUE [None]
  - JOINT INJURY [None]
  - PAIN IN EXTREMITY [None]
